FAERS Safety Report 9837463 (Version 2)
Quarter: 2014Q1

REPORT INFORMATION
  Report Type: Spontaneous
  Country: GB (occurrence: GB)
  Receive Date: 20140123
  Receipt Date: 20140207
  Transmission Date: 20141002
  Serious: Yes (Other)
  Sender: FDA-Public Use
  Company Number: GB-JNJFOC-20140110574

PATIENT
  Age: 66 Year
  Sex: Male
  Weight: 120 kg

DRUGS (4)
  1. REMICADE [Suspect]
     Indication: PSORIASIS
     Dosage: FREQUENCY/DOSING INTERVAL= 2/12
     Route: 042
     Dates: start: 200808
  2. ACITRETIN [Concomitant]
     Indication: NEOPLASM PROPHYLAXIS
     Route: 048
  3. VERAPAMIL [Concomitant]
     Indication: CLUSTER HEADACHE
     Route: 048
  4. IMIGRAN [Concomitant]
     Indication: CLUSTER HEADACHE
     Route: 050

REACTIONS (1)
  - Prostate cancer [Unknown]
